FAERS Safety Report 9101377 (Version 5)
Quarter: 2013Q2

REPORT INFORMATION
  Report Type: Spontaneous
  Country: US (occurrence: US)
  Receive Date: 20130215
  Receipt Date: 20130424
  Transmission Date: 20140414
  Serious: Yes (Other)
  Sender: FDA-Public Use
  Company Number: US-PFIZER INC-2013033319

PATIENT
  Age: 80 Year
  Sex: Female
  Weight: 68 kg

DRUGS (22)
  1. SUTENT [Suspect]
     Indication: GASTROINTESTINAL STROMAL TUMOUR
     Dosage: 37.5 MG, UNK
     Dates: start: 20121026
  2. SUTENT [Suspect]
     Dosage: 25 MG, DAILY
     Route: 048
     Dates: start: 20121103
  3. SUTENT [Suspect]
     Dosage: 37.5 MG DAILY CYCLIC
     Route: 048
     Dates: start: 20130114, end: 20130411
  4. FUROSEMIDE [Suspect]
     Dosage: UNK
  5. FUROSEMIDE [Suspect]
     Dosage: UNK, P.R.N. EVERY 2-3 DAYS
     Dates: start: 20130222
  6. HYDRALAZINE [Concomitant]
     Indication: HYPERTENSION
     Dosage: 50 MG, 2X/DAY
  7. COREG [Concomitant]
     Indication: HYPERTENSION
     Dosage: 12.5 MG, 2X/DAY
  8. VITAMIN K [Concomitant]
     Dosage: UNK
  9. VITAMIN B12 [Concomitant]
     Dosage: UNK
  10. L-CARNITINE [Concomitant]
     Dosage: UNK
  11. MELATONIN [Concomitant]
     Dosage: UNK
  12. LATANOPROST [Concomitant]
     Dosage: UNK
     Route: 047
  13. OMEGA FISH OILS [Concomitant]
     Dosage: UNK
  14. LUTEIN [Concomitant]
     Indication: EYE DISORDER
     Dosage: UNK
     Route: 047
  15. LUTEIN [Concomitant]
     Indication: EYE DISORDER
  16. TURMERIC [Concomitant]
     Dosage: UNK
  17. LASIX [Concomitant]
     Dosage: UNK
  18. AMINOCAPROIC ACID [Concomitant]
     Dosage: UNK
  19. OMEGA 3 PLUS D3 FISH OIL [Concomitant]
     Dosage: UNK
  20. M.V.I. [Concomitant]
     Dosage: UNK
  21. B-12 [Concomitant]
     Dosage: UNK
  22. FISH OIL [Concomitant]
     Dosage: UNK

REACTIONS (22)
  - Pulmonary oedema [Not Recovered/Not Resolved]
  - Disease progression [Unknown]
  - Gastrointestinal stromal tumour [Unknown]
  - Pain in jaw [Not Recovered/Not Resolved]
  - Cough [Not Recovered/Not Resolved]
  - Increased upper airway secretion [Not Recovered/Not Resolved]
  - Skin haemorrhage [Recovered/Resolved]
  - Contusion [Recovered/Resolved]
  - Circumstance or information capable of leading to medication error [Unknown]
  - Dizziness [Not Recovered/Not Resolved]
  - Balance disorder [Unknown]
  - Fatigue [Not Recovered/Not Resolved]
  - Asthenia [Unknown]
  - Pruritus [Unknown]
  - Dry skin [Unknown]
  - Sinusitis [Unknown]
  - Epistaxis [Unknown]
  - Anaemia [Unknown]
  - Somnolence [Unknown]
  - Dyspepsia [Unknown]
  - Abdominal pain lower [Unknown]
  - Visual acuity reduced [Unknown]
